FAERS Safety Report 7660097-2 (Version None)
Quarter: 2011Q3

REPORT INFORMATION
  Report Type: 
  Country: None (occurrence: None)
  Receive Date: 20110805
  Receipt Date: 20110722
  Transmission Date: 20111222
  Serious: Yes (Other)
  Sender: FDA-Public Use
  Company Number: PHHY2011BR66700

PATIENT
  Sex: Female
  Weight: 77 kg

DRUGS (6)
  1. OSCAL 500-D [Concomitant]
     Route: 065
  2. LEVOTHYROXINE SODIUM [Concomitant]
     Dosage: 100 UG, UNK
     Route: 065
  3. METOPROLOL SUCCINATE [Concomitant]
     Dosage: 50 MG, UNK
     Route: 065
  4. SOMALGIN [Concomitant]
     Dosage: 100 MG, UNK
     Route: 065
  5. EXFORGE [Suspect]
     Dosage: 1 DF(160/ 5 MG), UNK
     Route: 048
     Dates: start: 20100819
  6. EMAMA [Concomitant]
     Dosage: 400 MG, UNK
     Route: 065

REACTIONS (5)
  - OEDEMA PERIPHERAL [None]
  - SPEECH DISORDER [None]
  - VITAMIN D DEFICIENCY [None]
  - SWELLING FACE [None]
  - DYSPNOEA [None]
